FAERS Safety Report 5763448-9 (Version None)
Quarter: 2008Q2

REPORT INFORMATION
  Report Type: 
  Country: None (occurrence: None)
  Receive Date: 20080604
  Receipt Date: 20080604
  Transmission Date: 20081010
  Serious: Yes (Death)
  Sender: FDA-Public Use
  Company Number: None

PATIENT
  Age: 84 Year
  Sex: Female
  Weight: 66.2252 kg

DRUGS (2)
  1. DIGITEK 0.125 TAB UDL LABS [Suspect]
     Indication: ARRHYTHMIA
     Dosage: 1 TABLET DAILY ORALLY
     Route: 048
     Dates: start: 20010101, end: 20080101
  2. DIGITEK 0.125 TAB UDL LABS [Suspect]
     Indication: CARDIAC FAILURE
     Dosage: 1 TABLET DAILY ORALLY
     Route: 048
     Dates: start: 20010101, end: 20080101

REACTIONS (9)
  - BRAIN OEDEMA [None]
  - CEREBRAL HAEMORRHAGE [None]
  - CEREBROVASCULAR ACCIDENT [None]
  - CLAVICLE FRACTURE [None]
  - CONTUSION [None]
  - FALL [None]
  - HEAD INJURY [None]
  - MOUTH INJURY [None]
  - PHARMACEUTICAL PRODUCT COMPLAINT [None]
